FAERS Safety Report 6631447-0 (Version None)
Quarter: 2010Q1

REPORT INFORMATION
  Report Type: 
  Country: None (occurrence: None)
  Receive Date: 20100311
  Receipt Date: 20100311
  Transmission Date: 20100710
  Serious: Yes (Hospitalization)
  Sender: FDA-Public Use
  Company Number: None

PATIENT
  Age: 38 Year
  Sex: Male

DRUGS (3)
  1. AZATHIOPRINE [Suspect]
     Indication: COLITIS ULCERATIVE
     Dosage: NOT REPORTED DAILY PO
     Route: 048
     Dates: start: 20091217, end: 20100117
  2. REMICADE [Concomitant]
  3. LIALDA [Concomitant]

REACTIONS (1)
  - PANCREATITIS [None]
